FAERS Safety Report 19902959 (Version 1)
Quarter: 2021Q4

REPORT INFORMATION
  Report Type: Spontaneous
  Country: CR (occurrence: CR)
  Receive Date: 20211001
  Receipt Date: 20211001
  Transmission Date: 20220303
  Serious: Yes (Other)
  Sender: FDA-Public Use
  Company Number: CR-CELLTRION INC.-2021CR013135

PATIENT

DRUGS (1)
  1. HERZUMA [Suspect]
     Active Substance: TRASTUZUMAB-PKRB
     Indication: Product used for unknown indication
     Dosage: UNK
     Route: 042
     Dates: start: 20210823

REACTIONS (2)
  - Syncope [Unknown]
  - Neck pain [Unknown]

NARRATIVE: CASE EVENT DATE: 20210823
